FAERS Safety Report 6210071-8 (Version None)
Quarter: 2009Q2

REPORT INFORMATION
  Report Type: 
  Country: None (occurrence: None)
  Receive Date: 20090527
  Receipt Date: 20090518
  Transmission Date: 20091009
  Serious: Yes (Other)
  Sender: FDA-Public Use
  Company Number: 09ES001422

PATIENT
  Age: 54 Year
  Sex: Male

DRUGS (19)
  1. SIMVASTATIN [Suspect]
     Dosage: SEE IMAGE
     Route: 048
     Dates: start: 20040601, end: 20070101
  2. CYCLOSPORINE [Suspect]
     Indication: PROPHYLAXIS AGAINST GRAFT VERSUS HOST DISEASE
     Dosage: 0.05 MG, IV OVER 12 HOURS, INTRAVENOUS
     Route: 042
     Dates: start: 20070101, end: 20070101
  3. CYCLOSPORINE [Suspect]
     Indication: PROPHYLAXIS AGAINST GRAFT VERSUS HOST DISEASE
     Dosage: 0.05 MG, IV OVER 12 HOURS, INTRAVENOUS
     Route: 042
     Dates: start: 20070101
  4. RISPERIDONE [Suspect]
     Indication: CONFUSIONAL STATE
     Dosage: 1 MG/24H, ORAL
     Route: 048
     Dates: start: 20070101, end: 20070101
  5. ENALAPRIL MALEATE [Concomitant]
  6. ATENOLOL ACIS (ATENOLOL) [Concomitant]
  7. IDARUBICIN HCL [Concomitant]
  8. CITARABINE (CYTARABINE) [Concomitant]
  9. ETOPOSIDE [Concomitant]
  10. MITOXANTRON-GRY (MITOXANTRONE) [Concomitant]
  11. ACYCLOVIR [Concomitant]
  12. PENTAMIDINE (PENTAMIDINE) [Concomitant]
  13. VORICONAZOLE (VORICONAZOLE) [Concomitant]
  14. IMMUNOGLOBULIN (IMMUNOGLOBULIN HUMAN NORMAL) [Concomitant]
  15. FLUDARABINE PHOSPHATE [Concomitant]
  16. BUSULFAN (BUSULFAN) [Concomitant]
  17. METHOTREXATE [Concomitant]
  18. MEROPENEM (MEROPENEM) [Concomitant]
  19. TEICOPLANIN (TELCOPLANIN) [Concomitant]

REACTIONS (10)
  - ACUTE MYELOID LEUKAEMIA [None]
  - CONFUSIONAL STATE [None]
  - DRUG INTERACTION [None]
  - HALLUCINATIONS, MIXED [None]
  - MOTOR DYSFUNCTION [None]
  - PSYCHOTIC DISORDER [None]
  - RENAL FAILURE ACUTE [None]
  - RHABDOMYOLYSIS [None]
  - STEM CELL TRANSPLANT [None]
  - STOMATITIS [None]
